FAERS Safety Report 6373962-3 (Version None)
Quarter: 2009Q3

REPORT INFORMATION
  Report Type: 
  Country: None (occurrence: None)
  Receive Date: 20090924
  Receipt Date: 20090912
  Transmission Date: 20100115
  Serious: Yes (Death)
  Sender: FDA-Public Use
  Company Number: US-ALEXION-A200900256

PATIENT
  Sex: Female

DRUGS (11)
  1. SOLIRIS [Suspect]
     Indication: PAROXYSMAL NOCTURNAL HAEMOGLOBINURIA
     Dosage: 600 MG, QWK X4
     Route: 042
     Dates: start: 20080710, end: 20080801
  2. SOLIRIS [Suspect]
     Dosage: 900 MG, Q2WK
     Route: 042
     Dates: start: 20080807, end: 20090701
  3. SOLIRIS [Suspect]
     Dosage: 900 MG, Q9D
     Route: 042
     Dates: start: 20090701
  4. AMBIEN [Concomitant]
     Indication: INSOMNIA
     Dosage: 5 MG, PRN, MAY REPEAT X1
     Route: 048
  5. CYCLOSPORINE [Concomitant]
     Dosage: 300 MG, QD
     Route: 048
  6. EMLA                               /00675501/ [Concomitant]
     Dosage: APPLY TO AREA 30 MIN PRIOR TO TREATMENT
     Route: 061
  7. FOLIC ACID [Concomitant]
     Dosage: 5 MG, QD
     Route: 048
  8. KLONOPIN [Concomitant]
     Dosage: 0.5 MG, TID
     Route: 048
  9. LOVENOX [Concomitant]
     Dosage: 40 MG, BID
     Route: 058
  10. MAXALT                             /01406501/ [Concomitant]
     Dosage: 10 MG, PRN
     Route: 048
  11. ZOFRAN [Concomitant]
     Indication: NAUSEA
     Dosage: 4 MG, Q8H, PRN
     Route: 048

REACTIONS (3)
  - DRUG EXPOSURE DURING PREGNANCY [None]
  - PREGNANCY [None]
  - STILLBIRTH [None]
